FAERS Safety Report 5330648-1 (Version None)
Quarter: 2007Q2

REPORT INFORMATION
  Report Type: 
  Country: None (occurrence: None)
  Receive Date: 20070516
  Receipt Date: 20070503
  Transmission Date: 20071010
  Serious: Yes (Other)
  Sender: FDA-Public Use
  Company Number: 2007319610

PATIENT
  Sex: Female

DRUGS (4)
  1. BENADRYL [Suspect]
     Indication: HYPERSENSITIVITY
     Dosage: ONE TABLET 4 TIMES DAILY, ORAL
     Route: 048
     Dates: start: 20050101
  2. COUMADIN [Concomitant]
  3. ANTICOAGULANTS (ANTITHROMBOTIC AGENTS) [Concomitant]
  4. DRUG UNSPECIFIED [Concomitant]

REACTIONS (4)
  - DRUG DEPENDENCE [None]
  - NONSPECIFIC REACTION [None]
  - RENAL DISORDER [None]
  - SOMNOLENCE [None]
